FAERS Safety Report 6421770-7 (Version None)
Quarter: 2009Q4

REPORT INFORMATION
  Report Type: 
  Country: None (occurrence: None)
  Receive Date: 20091030
  Receipt Date: 20091021
  Transmission Date: 20100525
  Serious: Yes (Other)
  Sender: FDA-Public Use
  Company Number: A0798034A

PATIENT
  Sex: Female

DRUGS (1)
  1. TYKERB [Suspect]
     Indication: DRUG USE FOR UNKNOWN INDICATION
     Dosage: 1250MG UNKNOWN
     Route: 048
     Dates: start: 20090625

REACTIONS (6)
  - ABDOMINAL PAIN [None]
  - BLISTER [None]
  - DIARRHOEA [None]
  - DIZZINESS [None]
  - ILL-DEFINED DISORDER [None]
  - METASTASES TO CENTRAL NERVOUS SYSTEM [None]
